FAERS Safety Report 10183016 (Version 3)
Quarter: 2014Q2

REPORT INFORMATION
  Report Type: Spontaneous
  Country: BR (occurrence: BR)
  Receive Date: 20140520
  Receipt Date: 20140625
  Transmission Date: 20141212
  Serious: Yes (Other)
  Sender: FDA-Public Use
  Company Number: BR-NOVOPROD-407449

PATIENT
  Sex: Female

DRUGS (7)
  1. NOVOLIN N [Suspect]
     Indication: TYPE 2 DIABETES MELLITUS
     Dosage: 10 IU, QD
     Route: 058
     Dates: start: 2012
  2. NOVOLIN N [Suspect]
     Dosage: 18 IU, QD
     Route: 058
  3. METFORMIN [Concomitant]
     Dosage: 2 TAB
     Route: 065
  4. HYDROCHLOROTHIAZIDE [Concomitant]
     Dosage: 1 TAB
     Route: 065
  5. PROPRANOLOL [Concomitant]
     Indication: HYPERTENSION
     Dosage: 2 TAB
     Route: 048
  6. AMIODARONE [Concomitant]
     Indication: HEART RATE IRREGULAR
     Dosage: 1 TAB
     Route: 065
  7. ENALAPRIL [Concomitant]
     Indication: HYPERTENSION
     Dosage: 2 TAB
     Route: 065

REACTIONS (3)
  - Renal disorder [Unknown]
  - Expired product administered [Unknown]
  - Blood glucose increased [Recovered/Resolved]
